FAERS Safety Report 9371796 (Version 3)
Quarter: 2013Q4

REPORT INFORMATION
  Report Type: Spontaneous
  Country: JP (occurrence: JP)
  Receive Date: 20130627
  Receipt Date: 20131007
  Transmission Date: 20140711
  Serious: Yes (Hospitalization, Other)
  Sender: FDA-Public Use
  Company Number: JP-PFIZER INC-2013185134

PATIENT
  Age: 59 Year
  Sex: Male
  Weight: 50 kg

DRUGS (7)
  1. INLYTA [Suspect]
     Indication: RENAL CELL CARCINOMA
     Dosage: 5 MG, 2X/DAY
     Route: 048
     Dates: start: 20130607, end: 20130614
  2. PURSENNID [Concomitant]
     Dosage: 12 MG, 2X/DAY
     Route: 048
     Dates: start: 20120617
  3. TAKEPRON [Concomitant]
     Dosage: 15 MG, 1X/DAY
     Route: 048
     Dates: start: 20120706
  4. EURODIN [Concomitant]
     Dosage: 2 MG, 2X/DAY
     Route: 048
     Dates: start: 20120727
  5. MAGLAX [Concomitant]
     Dosage: 330 MG, 2X/DAY
     Route: 048
     Dates: start: 20120710
  6. LOXONIN [Concomitant]
     Indication: METASTATIC PAIN
     Dosage: 60 MG, AS NEEDED
     Route: 048
     Dates: start: 20130607
  7. ZOMETA [Concomitant]

REACTIONS (2)
  - Hypercalcaemia [Recovering/Resolving]
  - Hyponatraemia [Unknown]
